FAERS Safety Report 23598423 (Version 1)
Quarter: 2024Q1

REPORT INFORMATION
  Report Type: Spontaneous
  Country: GB (occurrence: GB)
  Receive Date: 20240305
  Receipt Date: 20240305
  Transmission Date: 20240410
  Serious: Yes (Hospitalization, Other)
  Sender: FDA-Public Use
  Company Number: GB-MHRA-MED-202402220036216550-YRSBH

PATIENT
  Age: 39 Year
  Sex: Male
  Weight: 75 kg

DRUGS (1)
  1. FLUOXETINE [Suspect]
     Active Substance: FLUOXETINE HYDROCHLORIDE
     Indication: Adverse drug reaction
     Dosage: 20 MILLIGRAM
     Route: 065
     Dates: start: 20190601

REACTIONS (12)
  - Anhedonia [Not Recovered/Not Resolved]
  - Dental caries [Not Recovered/Not Resolved]
  - Anxiety [Not Recovered/Not Resolved]
  - Agoraphobia [Not Recovered/Not Resolved]
  - Depression [Not Recovered/Not Resolved]
  - Partner stress [Not Recovered/Not Resolved]
  - Pain in extremity [Not Recovered/Not Resolved]
  - Sexual dysfunction [Not Recovered/Not Resolved]
  - Cognitive disorder [Not Recovered/Not Resolved]
  - Blunted affect [Not Recovered/Not Resolved]
  - Affect lability [Recovered/Resolved with Sequelae]
  - Crying [Recovered/Resolved with Sequelae]

NARRATIVE: CASE EVENT DATE: 20200301
